FAERS Safety Report 25324068 (Version 1)
Quarter: 2025Q2

REPORT INFORMATION
  Report Type: Spontaneous
  Country: US (occurrence: US)
  Receive Date: 20250516
  Receipt Date: 20250516
  Transmission Date: 20250716
  Serious: No
  Sender: NOVEN
  Company Number: US-NOVEN PHARMACEUTICALS, INC.-2025-NOV-US000239

PATIENT
  Sex: Male

DRUGS (1)
  1. DAYTRANA [Suspect]
     Active Substance: METHYLPHENIDATE
     Indication: Attention deficit hyperactivity disorder
     Route: 062

REACTIONS (5)
  - Asthenia [Recovered/Resolved]
  - Personality disorder [Recovered/Resolved]
  - Nausea [Recovered/Resolved]
  - Lethargy [Recovered/Resolved]
  - Off label use [Not Recovered/Not Resolved]
